FAERS Safety Report 15263163 (Version 6)
Quarter: 2018Q4

REPORT INFORMATION
  Report Type: Report from Study
  Country: US (occurrence: US)
  Receive Date: 20180810
  Receipt Date: 20181106
  Transmission Date: 20190204
  Serious: Yes (Hospitalization)
  Sender: FDA-Public Use
  Company Number: US-ROCHE-2165716

PATIENT
  Age: 78 Year
  Sex: Male
  Weight: 111.8 kg

DRUGS (30)
  1. SENNA [Concomitant]
     Active Substance: SENNA LEAF\SENNOSIDES\SENNOSIDES A AND B
     Indication: CONSTIPATION
     Route: 048
     Dates: start: 20180806, end: 20180807
  2. MAGNESIUM SULFATE. [Concomitant]
     Active Substance: MAGNESIUM SULFATE
     Indication: BLOOD MAGNESIUM DECREASED
     Dosage: 32 OTHER
     Route: 042
     Dates: start: 20180806, end: 20180806
  3. ALBUTEROL/IPRATROPIUM [Concomitant]
     Active Substance: ALBUTEROL\IPRATROPIUM
     Indication: DYSPNOEA
     Route: 050
     Dates: start: 20180808, end: 20180812
  4. ONDANSETRON [Concomitant]
     Active Substance: ONDANSETRON
     Indication: NAUSEA
     Route: 048
     Dates: start: 20160823
  5. ATEZOLIZUMAB. [Suspect]
     Active Substance: ATEZOLIZUMAB
     Indication: PLASMA CELL MYELOMA
     Dosage: 840 MG ON DAYS 2 AND 16 OF CYCLE 1 AND ON DAYS 1 AND 15 OF EACH 28-DAY CYCLE THEREAFTER.?ON 11/JUL/2
     Route: 042
     Dates: start: 20180531
  6. ASPIRIN. [Concomitant]
     Active Substance: ASPIRIN
     Indication: ANTICOAGULANT THERAPY
     Route: 048
     Dates: start: 20171115
  7. VANCOMYCIN [Concomitant]
     Active Substance: VANCOMYCIN
     Indication: COUGH
     Route: 042
     Dates: start: 20180806, end: 20180808
  8. LEVOFLOXACIN. [Concomitant]
     Active Substance: LEVOFLOXACIN
     Indication: C-REACTIVE PROTEIN INCREASED
     Route: 048
     Dates: start: 20180725
  9. LEVOFLOXACIN. [Concomitant]
     Active Substance: LEVOFLOXACIN
     Indication: COUGH
  10. VANCOMYCIN [Concomitant]
     Active Substance: VANCOMYCIN
     Indication: PYREXIA
  11. LEVOFLOXACIN. [Concomitant]
     Active Substance: LEVOFLOXACIN
     Indication: PYREXIA
  12. ACYCLOVIR. [Concomitant]
     Active Substance: ACYCLOVIR
     Indication: ORAL HERPES
     Route: 048
     Dates: start: 20170727
  13. AMLODIPINE [Concomitant]
     Active Substance: AMLODIPINE BESYLATE
     Indication: HYPERTENSION
     Route: 048
     Dates: start: 20160823
  14. DOCUSATE SODIUM. [Concomitant]
     Active Substance: DOCUSATE SODIUM
     Indication: CONSTIPATION
     Route: 048
     Dates: start: 20180805, end: 20180813
  15. MICAFUNGIN. [Concomitant]
     Active Substance: MICAFUNGIN SODIUM
     Route: 042
     Dates: start: 20180808, end: 20180811
  16. FAMOTIDINE. [Concomitant]
     Active Substance: FAMOTIDINE
     Route: 048
     Dates: start: 20180802, end: 20180813
  17. FLUTICASONE. [Concomitant]
     Active Substance: FLUTICASONE
     Indication: NASAL CONGESTION
     Route: 050
     Dates: start: 20180804, end: 20180813
  18. SODIUM CHLORIDE. [Concomitant]
     Active Substance: SODIUM CHLORIDE
     Route: 042
     Dates: start: 20180806, end: 20180806
  19. ATORVASTATIN CALCIUM. [Concomitant]
     Active Substance: ATORVASTATIN CALCIUM
     Indication: BLOOD CHOLESTEROL INCREASED
     Route: 048
  20. ALBUTEROL. [Concomitant]
     Active Substance: ALBUTEROL
     Indication: WHEEZING
     Route: 050
     Dates: start: 20180628
  21. MICAFUNGIN. [Concomitant]
     Active Substance: MICAFUNGIN SODIUM
     Route: 042
     Dates: start: 20180814, end: 20180814
  22. DARATUMUMAB [Suspect]
     Active Substance: DARATUMUMAB
     Indication: PLASMA CELL MYELOMA
     Dosage: ON DAYS 1, 8, 15, 22 OF CYCLES 1 AND 2; ON DAYS 1 AND 15 OF CYCLES 3 TO 6; AND ON DAY 1 OF EACH 28-D
     Route: 042
     Dates: start: 20180530
  23. SULFAMETHOXAZOLE [Concomitant]
     Active Substance: SULFAMETHOXAZOLE
     Indication: INFECTION
     Route: 048
     Dates: start: 20171102
  24. ZOLPIDEM [Concomitant]
     Active Substance: ZOLPIDEM\ZOLPIDEM TARTRATE
     Indication: INSOMNIA
     Route: 048
     Dates: start: 20171031
  25. FUROSEMIDE. [Concomitant]
     Active Substance: FUROSEMIDE
     Indication: OEDEMA
     Route: 048
  26. VORICONAZOLE. [Concomitant]
     Active Substance: VORICONAZOLE
     Route: 048
     Dates: start: 20180827
  27. ENOXAPARIN [Concomitant]
     Active Substance: ENOXAPARIN
     Indication: ANTICOAGULANT THERAPY
     Route: 058
     Dates: start: 20180802, end: 20180813
  28. GABAPENTIN. [Concomitant]
     Active Substance: GABAPENTIN
     Indication: NEURALGIA
     Route: 048
     Dates: start: 20180802, end: 20180813
  29. SENNA [Concomitant]
     Active Substance: SENNA LEAF\SENNOSIDES\SENNOSIDES A AND B
     Route: 048
     Dates: start: 20180811, end: 20180811
  30. MAALOX MAX LIQUID [Concomitant]
     Indication: DYSPEPSIA
     Route: 048
     Dates: start: 20180812, end: 20180812

REACTIONS (1)
  - Pneumonia [Recovered/Resolved]

NARRATIVE: CASE EVENT DATE: 20180725
